FAERS Safety Report 5302889-0 (Version None)
Quarter: 2007Q2

REPORT INFORMATION
  Report Type: 
  Country: None (occurrence: None)
  Receive Date: 20070419
  Receipt Date: 20070419
  Transmission Date: 20071010
  Serious: Yes (Life-Threatening, Hospitalization)
  Sender: FDA-Public Use
  Company Number: None

PATIENT
  Age: 59 Year
  Sex: Male
  Weight: 126 kg

DRUGS (3)
  1. WARFARIN SODIUM [Suspect]
     Indication: ATRIAL FIBRILLATION
     Dosage: 5MG DAILY EXCEPT PO
     Route: 048
     Dates: start: 20070315, end: 20070417
  2. AZITHROMYCIN [Suspect]
     Indication: BRONCHITIS
     Dosage: 250MG DAILY PO
     Route: 048
     Dates: start: 20070315, end: 20070319
  3. AZITHROMYCIN [Suspect]
     Indication: UPPER RESPIRATORY TRACT INFECTION
     Dosage: 250MG DAILY PO
     Route: 048
     Dates: start: 20070315, end: 20070319

REACTIONS (6)
  - ACTIVATED PARTIAL THROMBOPLASTIN TIME PROLONGED [None]
  - COAGULOPATHY [None]
  - DRUG INTERACTION [None]
  - FLANK PAIN [None]
  - HAEMATURIA [None]
  - INTERNATIONAL NORMALISED RATIO INCREASED [None]
